FAERS Safety Report 16977336 (Version 2)
Quarter: 2019Q4

REPORT INFORMATION
  Report Type: Spontaneous
  Country: US (occurrence: US)
  Receive Date: 20191031
  Receipt Date: 20191212
  Transmission Date: 20200122
  Serious: Yes (Other)
  Sender: FDA-Public Use
  Company Number: US-ALEXION PHARMACEUTICALS INC.-A201916369

PATIENT
  Age: 57 Year
  Sex: Male

DRUGS (4)
  1. IVIGLOB EX [Concomitant]
     Active Substance: HUMAN IMMUNOGLOBULIN G
     Indication: MYASTHENIA GRAVIS
     Dosage: 0.6 MG/KG, Q3W 4 DAYS
     Route: 065
     Dates: start: 20160101
  2. SOLIRIS [Suspect]
     Active Substance: ECULIZUMAB
     Indication: MYASTHENIA GRAVIS
     Dosage: 1200 MG, Q2W
     Route: 042
     Dates: start: 20181101
  3. PREDNISONE. [Concomitant]
     Active Substance: PREDNISONE
     Indication: MYASTHENIA GRAVIS
     Dosage: 20 MG, 1.5T EVERY OTHER DAY
     Route: 065
  4. MESTINON [Concomitant]
     Active Substance: PYRIDOSTIGMINE BROMIDE
     Indication: MYASTHENIA GRAVIS
     Dosage: 180 MG, ER
     Route: 065

REACTIONS (2)
  - Conjunctival haemorrhage [Recovered/Resolved]
  - Eye injury [Recovered/Resolved]

NARRATIVE: CASE EVENT DATE: 20191018
